FAERS Safety Report 9388797 (Version 2)
Quarter: 2013Q3

REPORT INFORMATION
  Report Type: Spontaneous
  Country: FR (occurrence: FR)
  Receive Date: 20130708
  Receipt Date: 20130715
  Transmission Date: 20140515
  Serious: Yes (Hospitalization, Other)
  Sender: FDA-Public Use
  Company Number: PHHY2013FR070564

PATIENT
  Age: 39 Year
  Sex: Male

DRUGS (3)
  1. HEPARIN [Suspect]
     Indication: PULMONARY EMBOLISM
     Dosage: 45000 UL, QD
     Route: 042
  2. ARGATROBAN [Suspect]
     Indication: HEPARIN-INDUCED THROMBOCYTOPENIA
     Dosage: 15 MG/H, UNK
     Route: 042
  3. ARGATROBAN [Suspect]
     Dosage: 20 MG/H, UNK
     Route: 042

REACTIONS (3)
  - Heparin-induced thrombocytopenia [Recovered/Resolved]
  - Activated partial thromboplastin time abnormal [Recovered/Resolved]
  - Incorrect dose administered [Recovered/Resolved]
